FAERS Safety Report 7051135-9 (Version None)
Quarter: 2010Q4

REPORT INFORMATION
  Report Type: 
  Country: None (occurrence: None)
  Receive Date: 20101019
  Receipt Date: 20101007
  Transmission Date: 20110411
  Serious: Yes (Other)
  Sender: FDA-Public Use
  Company Number: DE-JNJFOC-20101004470

PATIENT
  Age: 53 Year
  Sex: Male
  Weight: 80 kg

DRUGS (5)
  1. REOPRO [Suspect]
     Indication: PRODUCT USED FOR UNKNOWN INDICATION
     Route: 065
  2. PRASUGREL [Suspect]
     Indication: ACUTE MYOCARDIAL INFARCTION
  3. PRASUGREL [Suspect]
  4. ACETYLSALICYLIC ACID [Concomitant]
     Indication: PRODUCT USED FOR UNKNOWN INDICATION
  5. HEPARIN [Concomitant]
     Indication: PRODUCT USED FOR UNKNOWN INDICATION

REACTIONS (4)
  - ANAEMIA [None]
  - HYPOTONIA [None]
  - HYPOVOLAEMIA [None]
  - RETROPERITONEAL HAEMATOMA [None]
